FAERS Safety Report 9337489 (Version 1)
Quarter: 2013Q2

REPORT INFORMATION
  Report Type: Spontaneous
  Country: US (occurrence: US)
  Receive Date: 20130607
  Receipt Date: 20130607
  Transmission Date: 20140414
  Serious: Yes (Other)
  Sender: FDA-Public Use
  Company Number: US-UCBSA-088195

PATIENT
  Sex: Female

DRUGS (5)
  1. CIMZIA [Suspect]
     Indication: CROHN^S DISEASE
     Dosage: UNKNOWN DOSE
  2. ASACOL [Concomitant]
  3. PREDNISONE [Concomitant]
  4. REMICADE [Concomitant]
  5. HUMIRA [Concomitant]

REACTIONS (9)
  - Deep vein thrombosis [Unknown]
  - Osteoporosis [Unknown]
  - Pneumonia [Unknown]
  - Irritable bowel syndrome [Unknown]
  - Crohn^s disease [Recovered/Resolved]
  - Blood pressure abnormal [Unknown]
  - Dental caries [Unknown]
  - Teeth brittle [Unknown]
  - Oral disorder [Unknown]
